FAERS Safety Report 6719725-8 (Version None)
Quarter: 2010Q2

REPORT INFORMATION
  Report Type: 
  Country: None (occurrence: None)
  Receive Date: 20100511
  Receipt Date: 20100427
  Transmission Date: 20101027
  Serious: Yes (Hospitalization, Other)
  Sender: FDA-Public Use
  Company Number: PHHY2010JP16727

PATIENT
  Sex: Female
  Weight: 74 kg

DRUGS (9)
  1. DIOVAN HCT [Suspect]
     Indication: HYPERTENSION
     Dosage: 1 DF, QD
     Route: 048
     Dates: start: 20090620, end: 20100201
  2. ADALAT CC [Concomitant]
     Dosage: 40 MG, UNK
     Route: 048
  3. ARTIST [Concomitant]
     Dosage: 20 MG, UNK
     Route: 048
  4. ZYLORIC [Concomitant]
     Dosage: UNK
     Route: 048
  5. EVISTA [Concomitant]
     Dosage: 60 MG
     Route: 048
  6. FK [Concomitant]
     Dosage: 3 G
     Route: 048
  7. GASMOTIN [Concomitant]
     Dosage: 15 MG
     Route: 048
  8. URITOS [Concomitant]
     Dosage: 0.1 MG
     Route: 048
  9. HUMALOG [Concomitant]
     Dosage: 24 IU
     Route: 058

REACTIONS (10)
  - BLOOD CHLORIDE INCREASED [None]
  - BLOOD GLUCOSE INCREASED [None]
  - BLOOD POTASSIUM DECREASED [None]
  - BLOOD PRESSURE INCREASED [None]
  - BLOOD SODIUM DECREASED [None]
  - BRAIN NATRIURETIC PEPTIDE INCREASED [None]
  - CARDIAC FAILURE [None]
  - DIZZINESS [None]
  - ELECTROLYTE IMBALANCE [None]
  - SOMNOLENCE [None]
